FAERS Safety Report 18405821 (Version 8)
Quarter: 2021Q3

REPORT INFORMATION
  Report Type: Report from Study
  Country: CA (occurrence: CA)
  Receive Date: 20201020
  Receipt Date: 20210803
  Transmission Date: 20211014
  Serious: Yes (Other)
  Sender: FDA-Public Use
  Company Number: PHHY2015CA019839

PATIENT
  Age: 78 Year
  Sex: Female

DRUGS (3)
  1. SANDOSTATIN LAR DEPOT [Suspect]
     Active Substance: OCTREOTIDE ACETATE
  2. SANDOSTATIN LAR DEPOT [Suspect]
     Active Substance: OCTREOTIDE ACETATE
  3. SANDOSTATIN LAR DEPOT [Suspect]
     Active Substance: OCTREOTIDE ACETATE
     Indication: NEUROENDOCRINE TUMOUR
     Dosage: 30 MG, QMO (EVERY 4 WEEKS)
     Route: 030
     Dates: start: 20150115

REACTIONS (14)
  - Anxiety [Unknown]
  - Oedema [Unknown]
  - Chest discomfort [Unknown]
  - Bronchitis [Unknown]
  - Insomnia [Unknown]
  - Skin laceration [Unknown]
  - Blood pressure systolic increased [Unknown]
  - Body temperature decreased [Unknown]
  - Blood pressure increased [Unknown]
  - Stress [Unknown]
  - Fatigue [Unknown]
  - Sciatica [Unknown]
  - Pneumonia [Unknown]
  - Swelling [Unknown]

NARRATIVE: CASE EVENT DATE: 20150212
